FAERS Safety Report 17605807 (Version 4)
Quarter: 2020Q2

REPORT INFORMATION
  Report Type: Spontaneous
  Country: US (occurrence: US)
  Receive Date: 20200331
  Receipt Date: 20200608
  Transmission Date: 20200713
  Serious: No
  Sender: FDA-Public Use
  Company Number: US-ACTELION-A-US2020-203773

PATIENT
  Sex: Female
  Weight: 52.61 kg

DRUGS (3)
  1. VELETRI [Suspect]
     Active Substance: EPOPROSTENOL
     Indication: PULMONARY ARTERIAL HYPERTENSION
     Dosage: 56 NG/KG, PER MIN
     Route: 042
  2. OPSUMIT [Suspect]
     Active Substance: MACITENTAN
     Indication: PULMONARY ARTERIAL HYPERTENSION
     Dosage: 10 MG, QD
     Route: 048
  3. VELETRI [Suspect]
     Active Substance: EPOPROSTENOL
     Dosage: 60 NG/KG, PER MIN
     Route: 042

REACTIONS (8)
  - Herpes zoster [Unknown]
  - Fatigue [Unknown]
  - Insomnia [Unknown]
  - Device malfunction [Unknown]
  - Device occlusion [Recovered/Resolved]
  - Diarrhoea [Unknown]
  - Device alarm issue [Unknown]
  - Device dislocation [Unknown]
